FAERS Safety Report 6917467-7 (Version None)
Quarter: 2010Q3

REPORT INFORMATION
  Report Type: 
  Country: None (occurrence: None)
  Receive Date: 20100810
  Receipt Date: 20100804
  Transmission Date: 20110219
  Serious: Yes (Death)
  Sender: FDA-Public Use
  Company Number: PHHY2010JP41297

PATIENT
  Sex: Female

DRUGS (10)
  1. ZOLEDRONATE T29581+ [Suspect]
     Indication: MULTIPLE MYELOMA
     Dosage: 4MG (EVERY 4 TO 5 WEEKS)
     Route: 041
     Dates: start: 20070903, end: 20091228
  2. MUCODYNE [Concomitant]
     Dosage: 1500 MG
     Route: 048
     Dates: start: 20040116, end: 20100321
  3. EMPYNASE [Concomitant]
     Dosage: 27000 IU
     Route: 048
     Dates: start: 20040116, end: 20100301
  4. CLARITHROMYCIN [Concomitant]
     Dosage: 400 MG
     Route: 048
     Dates: start: 20040116, end: 20100331
  5. RIFADIN [Concomitant]
     Dosage: 450 MG
     Route: 048
     Dates: start: 20040116, end: 20100331
  6. ASTOMIN [Concomitant]
     Dosage: 30 MG
     Route: 048
     Dates: start: 20040116, end: 20100331
  7. SIGMART [Concomitant]
     Dosage: 10 MG
     Route: 048
     Dates: start: 20080930, end: 20081016
  8. GASMOTIN [Concomitant]
     Dosage: 10 MG
     Route: 048
     Dates: start: 20080930, end: 20081016
  9. COMELIAN [Concomitant]
     Dosage: 100 MG
     Route: 048
     Dates: start: 20080930, end: 20081016
  10. METHYCOBAL [Concomitant]
     Dosage: 1000 ?G
     Route: 048
     Dates: start: 20080930, end: 20081016

REACTIONS (3)
  - ATYPICAL MYCOBACTERIAL INFECTION [None]
  - CONCOMITANT DISEASE AGGRAVATED [None]
  - DYSPNOEA [None]
